FAERS Safety Report 20797184 (Version 1)
Quarter: 2022Q2

REPORT INFORMATION
  Report Type: Spontaneous
  Country: JP (occurrence: JP)
  Receive Date: 20220506
  Receipt Date: 20220506
  Transmission Date: 20220721
  Serious: Yes (Hospitalization)
  Sender: FDA-Public Use
  Company Number: JP-ALLERGAN-2214539US

PATIENT
  Sex: Female

DRUGS (1)
  1. ASENAPINE MALEATE [Suspect]
     Active Substance: ASENAPINE MALEATE
     Indication: Bipolar disorder
     Dosage: 5 MG, BID
     Route: 060

REACTIONS (2)
  - Condition aggravated [Unknown]
  - Off label use [Unknown]
